FAERS Safety Report 5092402-8 (Version None)
Quarter: 2006Q3

REPORT INFORMATION
  Report Type: 
  Country: None (occurrence: None)
  Receive Date: 20060825
  Receipt Date: 20060810
  Transmission Date: 20061208
  Serious: Yes (Other)
  Sender: FDA-Public Use
  Company Number: 2006-06-1275

PATIENT
  Age: 65 Year
  Sex: Male

DRUGS (6)
  1. CLARITIN [Suspect]
     Indication: LACRIMATION INCREASED
     Dosage: 3 DAYS ORAL
     Route: 048
     Dates: start: 20060609, end: 20060612
  2. CLARITIN [Suspect]
     Indication: RHINORRHOEA
     Dosage: 3 DAYS ORAL
     Route: 048
     Dates: start: 20060609, end: 20060612
  3. CLARITIN [Suspect]
     Indication: SNEEZING
     Dosage: 3 DAYS ORAL
     Route: 048
     Dates: start: 20060609, end: 20060612
  4. HYTRIN [Concomitant]
  5. HYDROCHLOROTHIAZIDE [Concomitant]
  6. EYE DROPS [Concomitant]

REACTIONS (1)
  - URINARY RETENTION [None]
